FAERS Safety Report 9269241 (Version 1)
Quarter: 2013Q2

REPORT INFORMATION
  Report Type: Spontaneous
  Country: US (occurrence: US)
  Receive Date: 20130503
  Receipt Date: 20130503
  Transmission Date: 20140414
  Serious: No
  Sender: FDA-Public Use
  Company Number: US-PFIZER INC-2013135501

PATIENT
  Age: 62 Year
  Sex: Female
  Weight: 61.7 kg

DRUGS (5)
  1. LEVOXYL [Suspect]
     Indication: THYROID DISORDER
     Dosage: 50 UG, 1X/DAY
  2. LEVOXYL [Suspect]
     Dosage: 75 UG, 1X/DAY
  3. LEVOXYL [Suspect]
     Dosage: 88 UG, 1X/DAY
  4. LEVOXYL [Suspect]
     Dosage: 100 UG, 1X/DAY
     Dates: start: 2013, end: 2013
  5. LEVOTHYROXINE SODIUM [Suspect]
     Indication: THYROID DISORDER
     Dosage: 100 UG, 1X/DAY
     Dates: start: 20130408

REACTIONS (2)
  - Drug ineffective [Unknown]
  - Fatigue [Unknown]
